FAERS Safety Report 7829006-7 (Version None)
Quarter: 2011Q4

REPORT INFORMATION
  Report Type: 
  Country: None (occurrence: None)
  Receive Date: 20111020
  Receipt Date: 20111014
  Transmission Date: 20120403
  Serious: Yes (Death, Hospitalization)
  Sender: FDA-Public Use
  Company Number: DE-ELI_LILLY_AND_COMPANY-DE201110003413

PATIENT
  Age: 81 Year
  Sex: Female

DRUGS (10)
  1. LERCANIDIPINE [Concomitant]
     Dosage: 10 MG, UNK
  2. ASPIRIN [Concomitant]
  3. SPIRONOLACTONE [Concomitant]
     Dosage: 25 MG, UNK
  4. DESMOPRESSIN [Concomitant]
     Dosage: 1 UG, UNK
  5. LEVOTHYROXINE SODIUM [Concomitant]
     Dosage: 10 MG, UNK
  6. SIMVASTATIN [Concomitant]
     Dosage: 10 MG, UNK
  7. LEVETIRACETAM [Concomitant]
     Dosage: 5 MG, UNK
  8. PROCORALAN [Concomitant]
     Dosage: 3 MG, UNK
  9. HUMATROPE [Suspect]
     Dosage: 6 MG, BID
     Route: 058
  10. HYDROCORTISONE [Concomitant]
     Dosage: 10 MG, UNK

REACTIONS (2)
  - CARDIAC FAILURE [None]
  - ACCIDENT [None]
